FAERS Safety Report 23560161 (Version 1)
Quarter: 2024Q1

REPORT INFORMATION
  Report Type: Spontaneous
  Country: US (occurrence: US)
  Receive Date: 20240223
  Receipt Date: 20240223
  Transmission Date: 20240410
  Serious: No
  Sender: FDA-Public Use
  Company Number: AP-2023-US-5601

PATIENT
  Age: 66 Year
  Sex: Female

DRUGS (1)
  1. CROMOLYN SODIUM [Suspect]
     Active Substance: CROMOLYN SODIUM
     Indication: Mast cell activation syndrome
     Route: 048
     Dates: start: 202310

REACTIONS (4)
  - Inappropriate schedule of product administration [Unknown]
  - Drug intolerance [Unknown]
  - Headache [Unknown]
  - Drug ineffective [Unknown]
